FAERS Safety Report 5144984-5 (Version None)
Quarter: 2006Q4

REPORT INFORMATION
  Report Type: 
  Country: None (occurrence: None)
  Receive Date: 20061107
  Receipt Date: 20061101
  Transmission Date: 20070319
  Serious: Yes (Death)
  Sender: FDA-Public Use
  Company Number: US-BAYER-200616258BWH

PATIENT

DRUGS (2)
  1. TRASYLOL [Suspect]
     Indication: AORTIC VALVE REPLACEMENT
     Dates: start: 20060101
  2. PROTAMINE SULFATE [Suspect]
     Indication: CORONARY ARTERY BYPASS
     Dates: start: 20060101

REACTIONS (1)
  - CARDIAC ARREST [None]
